FAERS Safety Report 8910016 (Version 1)
Quarter: 2012Q4

REPORT INFORMATION
  Report Type: 
  Country: US (occurrence: US)
  Receive Date: 20121115
  Receipt Date: 20121115
  Transmission Date: 20130627
  Serious: No
  Sender: FDA-Public Use
  Company Number: US-PFIZER INC-2012284775

PATIENT
  Age: 57 Year
  Sex: Female
  Weight: 63.49 kg

DRUGS (2)
  1. PRISTIQ [Suspect]
     Indication: DEPRESSION
     Dosage: splitting 50 mg tablets into half daily at night
     Route: 048
     Dates: start: 201210, end: 201210
  2. PRISTIQ [Suspect]
     Dosage: a quarter of 50 mg tablet daily at night
     Route: 048
     Dates: start: 201210, end: 201210

REACTIONS (2)
  - Diarrhoea [Recovered/Resolved]
  - Off label use [Unknown]
